FAERS Safety Report 7793147-3 (Version None)
Quarter: 2011Q4

REPORT INFORMATION
  Report Type: 
  Country: None (occurrence: None)
  Receive Date: 20111003
  Receipt Date: 20110914
  Transmission Date: 20120403
  Serious: No
  Sender: FDA-Public Use
  Company Number: US-TYCO HEALTHCARE/MALLINCKRODT-T201101804

PATIENT

DRUGS (3)
  1. FENTORA [Concomitant]
     Dosage: UNK
  2. EXALGO [Suspect]
     Dosage: UNK
  3. TESTOSTERONE [Concomitant]
     Dosage: UNK

REACTIONS (3)
  - RASH [None]
  - ABNORMAL SENSATION IN EYE [None]
  - EYE PAIN [None]
